FAERS Safety Report 7799763-7 (Version None)
Quarter: 2011Q4

REPORT INFORMATION
  Report Type: 
  Country: None (occurrence: None)
  Receive Date: 20111004
  Receipt Date: 20110920
  Transmission Date: 20120403
  Serious: Yes (Death, Congenital Anomaly)
  Sender: FDA-Public Use
  Company Number: 1051739

PATIENT
  Sex: Male

DRUGS (1)
  1. METHOTREXATE [Suspect]
     Dosage: 87 MG, TRANSPLACENTAL
     Route: 064

REACTIONS (6)
  - SINGLE UMBILICAL ARTERY [None]
  - PULMONARY MALFORMATION [None]
  - TRISOMY 13 [None]
  - CONGENITAL CHOROID PLEXUS CYST [None]
  - FALLOT'S TETRALOGY [None]
  - MATERNAL DRUGS AFFECTING FOETUS [None]
